FAERS Safety Report 22585224 (Version 3)
Quarter: 2023Q2

REPORT INFORMATION
  Report Type: Spontaneous
  Country: GB (occurrence: GB)
  Receive Date: 20230609
  Receipt Date: 20230626
  Transmission Date: 20230721
  Serious: Yes (Death, Other)
  Sender: FDA-Public Use
  Company Number: GB-ALXN-A202307565

PATIENT
  Age: 63 Year
  Sex: Male

DRUGS (14)
  1. ULTOMIRIS [Suspect]
     Active Substance: RAVULIZUMAB-CWVZ
     Indication: Atypical haemolytic uraemic syndrome
     Dosage: 2700 MG, UNK
     Route: 065
     Dates: start: 20221006
  2. ULTOMIRIS [Suspect]
     Active Substance: RAVULIZUMAB-CWVZ
     Dosage: 2700 MG, UNK
     Route: 065
     Dates: start: 20221020
  3. TACROLIMUS [Concomitant]
     Active Substance: TACROLIMUS
     Indication: Prophylaxis against transplant rejection
     Dosage: UNK
     Route: 065
     Dates: start: 20211216
  4. AZITHROMYCIN [Concomitant]
     Active Substance: AZITHROMYCIN
     Indication: Mycobacterium chelonae infection
     Dosage: UNK
     Route: 065
     Dates: start: 20221013
  5. BISOPROLOL [Concomitant]
     Active Substance: BISOPROLOL
     Indication: Product used for unknown indication
     Dosage: UNK
     Route: 065
     Dates: start: 20220221
  6. DARBEPOETIN ALFA [Concomitant]
     Active Substance: DARBEPOETIN ALFA
     Indication: Nephrogenic anaemia
     Dosage: UNK
     Route: 065
  7. FUROSEMIDE [Concomitant]
     Active Substance: FUROSEMIDE
     Indication: Oedema
     Dosage: UNK
     Route: 065
     Dates: start: 20221130
  8. LINEZOLID [Concomitant]
     Active Substance: LINEZOLID
     Indication: Mycobacterium chelonae infection
     Dosage: UNK
     Route: 065
     Dates: start: 20221013, end: 20221122
  9. MOXIFLOXACIN [Concomitant]
     Active Substance: MOXIFLOXACIN
     Indication: Mycobacterium chelonae infection
     Dosage: UNK
     Route: 065
     Dates: start: 20221013
  10. MYCOPHENOLATE MOFETIL [Concomitant]
     Active Substance: MYCOPHENOLATE MOFETIL
     Indication: Prophylaxis against transplant rejection
     Dosage: UNK
     Route: 065
     Dates: start: 20211229
  11. OMEPRAZOLE [Concomitant]
     Active Substance: OMEPRAZOLE
     Indication: Hyperchlorhydria
     Dosage: UNK
     Route: 065
     Dates: start: 20211222
  12. PENICILLIN V [Concomitant]
     Active Substance: PENICILLIN V
     Indication: Prophylaxis
     Dosage: UNK
     Route: 065
     Dates: start: 20220321
  13. PREDNISOLONE [Concomitant]
     Active Substance: PREDNISOLONE
     Indication: Prophylaxis against transplant rejection
     Dosage: UNK
     Route: 065
     Dates: start: 20220420
  14. TAMSULOSIN [Concomitant]
     Active Substance: TAMSULOSIN
     Indication: Prostatism
     Dosage: UNK
     Route: 065
     Dates: start: 20211224

REACTIONS (5)
  - Cardiac arrest [Fatal]
  - Embolism [Unknown]
  - Haemoptysis [Unknown]
  - Body temperature increased [Unknown]
  - Off label use [Unknown]

NARRATIVE: CASE EVENT DATE: 20221020
